FAERS Safety Report 8300557-4 (Version None)
Quarter: 2012Q2

REPORT INFORMATION
  Report Type: 
  Country: None (occurrence: None)
  Receive Date: 20120417
  Receipt Date: 20120404
  Transmission Date: 20120825
  Serious: Yes (Hospitalization, Disabling, Other)
  Sender: FDA-Public Use
  Company Number: 2009AL001700

PATIENT
  Sex: Female
  Weight: 93.8946 kg

DRUGS (95)
  1. SUDAFED 12 HOUR [Concomitant]
  2. VICODIN [Concomitant]
  3. LISINOPRIL [Concomitant]
  4. METAMUCIL-2 [Concomitant]
  5. BACTRIM [Concomitant]
  6. ACYCLOVIR [Concomitant]
  7. CODEINE [Concomitant]
  8. RANITIDINE [Concomitant]
  9. GABAPENTIN [Concomitant]
  10. CEPHALEXIN [Concomitant]
  11. FUROSEMIDE [Concomitant]
  12. SPIRONOLACTONE [Concomitant]
  13. ASPIRIN [Concomitant]
  14. ERYTHROMYCIN [Concomitant]
  15. GABAPENTIN [Concomitant]
  16. SKELAXIN [Concomitant]
  17. AVELOX [Concomitant]
  18. DUONEB [Concomitant]
  19. LISINOPRIL [Concomitant]
  20. LEXAPRO [Concomitant]
  21. IBUPROFEN [Concomitant]
  22. AMOXICILLIN [Concomitant]
  23. POTASSIUM CHLORIDE [Concomitant]
  24. SPIRONOLACTONE [Concomitant]
  25. MAGNESIUM OXIDE [Concomitant]
  26. BIRTH CONTROL PILLS [Concomitant]
  27. PAXIL [Concomitant]
  28. ADVAIR DISKUS 100/50 [Concomitant]
  29. IMIPRAMINE [Concomitant]
  30. NITROGLYCERIN [Concomitant]
  31. AMPICILLIN [Concomitant]
  32. FLEXERIL [Concomitant]
  33. NON-STEROIDAL ANTI-INFLAMMATORY [Concomitant]
  34. PREDNISONE [Concomitant]
  35. CHANTIX [Concomitant]
  36. DICLOXACILLIN [Concomitant]
  37. INDERAL [Concomitant]
  38. ALBUTEROL [Concomitant]
  39. VIOXX [Concomitant]
  40. SIMVASTATIN [Concomitant]
  41. BUSPAR [Concomitant]
  42. DIGOXIN [Suspect]
     Dosage: 0.25 MG;QD;PO
     Route: 048
     Dates: start: 20070913, end: 20100611
  43. TYLENOL (CAPLET) [Concomitant]
  44. SERZONE [Concomitant]
  45. ROBAXIN [Concomitant]
  46. ZANTAC [Concomitant]
  47. PENICILLIN [Concomitant]
  48. PHENERGAN HCL [Concomitant]
  49. METOPROLOL TARTRATE [Concomitant]
  50. NITROGLYCERIN [Concomitant]
  51. LASIX [Concomitant]
  52. TOPROL-XL [Concomitant]
  53. QVAR 40 [Concomitant]
  54. SIMVASTATIN [Concomitant]
  55. MAGNESIUM HYDROXIDE TAB [Concomitant]
  56. PROVENTIL [Concomitant]
  57. BIAXIN [Concomitant]
  58. PROTONIX [Concomitant]
  59. ALDACTONE [Concomitant]
  60. PACERONE [Concomitant]
  61. AMITRIPTYLINE HCL [Concomitant]
  62. IPRATROPIUM BROMIDE [Concomitant]
  63. AUGMENTIN '125' [Concomitant]
  64. GARAMYCIN [Concomitant]
  65. KEFLEX [Concomitant]
  66. LOVENOX [Concomitant]
  67. AVALIDE [Concomitant]
  68. HYDROCODONE BITARTRATE [Concomitant]
  69. PRILOSEC [Concomitant]
  70. CLINDAMYCIN [Concomitant]
  71. METOPROLOL TARTRATE [Concomitant]
  72. ACTIFED [Concomitant]
  73. XANAX [Concomitant]
  74. BUSPAR [Concomitant]
  75. TYLENOL (CAPLET) [Concomitant]
  76. CELEXA [Concomitant]
  77. ELAVIL [Concomitant]
  78. HYDROCODONE BITARTRATE [Concomitant]
  79. NAPROXEN [Concomitant]
  80. AMIODARONE HCL [Concomitant]
  81. ALBUTEROL [Concomitant]
  82. IMIPRAMINE [Concomitant]
  83. NITROGLYCERIN [Concomitant]
  84. CARDIZEM [Concomitant]
  85. AMIODARONE HCL [Concomitant]
  86. SOTALOL HCL [Concomitant]
  87. TIKOSYN [Concomitant]
  88. LEXAPRO [Concomitant]
  89. TRIPHASIL-21 [Concomitant]
  90. GUAIFENESIN [Concomitant]
  91. ROCEPHIN [Concomitant]
  92. AMITRIPTYLINE HCL [Concomitant]
  93. COMBIVENT [Concomitant]
  94. PREVACID [Concomitant]
  95. DOXYCYCLINE [Concomitant]

REACTIONS (49)
  - UNEVALUABLE EVENT [None]
  - CONGESTIVE CARDIOMYOPATHY [None]
  - HYPERCHOLESTEROLAEMIA [None]
  - ATRIAL FIBRILLATION [None]
  - WEIGHT FLUCTUATION [None]
  - IRRITABILITY [None]
  - ANHEDONIA [None]
  - DYSPNOEA [None]
  - OBESITY [None]
  - INITIAL INSOMNIA [None]
  - SOMNOLENCE [None]
  - CRYING [None]
  - ASTHENIA [None]
  - ATRIOVENTRICULAR BLOCK FIRST DEGREE [None]
  - EMOTIONAL DISORDER [None]
  - ORTHOSTATIC INTOLERANCE [None]
  - HEADACHE [None]
  - DISTURBANCE IN ATTENTION [None]
  - DEPRESSION [None]
  - HYPERTENSION [None]
  - ADJUSTMENT DISORDER WITH MIXED ANXIETY AND DEPRESSED MOOD [None]
  - PAIN IN EXTREMITY [None]
  - MYOCARDIAL INFARCTION [None]
  - DEHYDRATION [None]
  - TOBACCO ABUSE [None]
  - NECK PAIN [None]
  - BLISTER [None]
  - ANXIETY [None]
  - MUSCLE SPASMS [None]
  - TREATMENT NONCOMPLIANCE [None]
  - PAIN [None]
  - DIZZINESS [None]
  - HYPERKALAEMIA [None]
  - CARDIAC DISORDER [None]
  - STRESS [None]
  - CARDIAC FAILURE CONGESTIVE [None]
  - HYPOMAGNESAEMIA [None]
  - DYSPNOEA EXERTIONAL [None]
  - CHEST DISCOMFORT [None]
  - TOOTH INFECTION [None]
  - DEPRESSED MOOD [None]
  - ECONOMIC PROBLEM [None]
  - FATIGUE [None]
  - HYPOKALAEMIA [None]
  - TOOTHACHE [None]
  - OEDEMA [None]
  - SLEEP DISORDER [None]
  - SOCIAL AVOIDANT BEHAVIOUR [None]
  - CELLULITIS [None]
